FAERS Safety Report 4472057-3 (Version None)
Quarter: 2004Q4

REPORT INFORMATION
  Report Type: 
  Country: None (occurrence: None)
  Receive Date: 20041012
  Receipt Date: 20041006
  Transmission Date: 20050328
  Serious: Yes (Other)
  Sender: FDA-Public Use
  Company Number: 002883

PATIENT
  Age: 58 Year
  Sex: Female

DRUGS (5)
  1. MEDROXYPROGESTERONE ACETATE [Suspect]
     Dosage: ORAL
     Route: 048
     Dates: start: 19861001, end: 20030801
  2. PROVERA [Suspect]
     Dosage: ORAL
     Route: 048
     Dates: start: 19861001, end: 20030801
  3. ACTIVELLA [Suspect]
     Dosage: ORAL
     Route: 048
     Dates: start: 19861001, end: 20030801
  4. PREMARIN [Suspect]
     Dosage: ORAL
     Route: 048
     Dates: start: 19861001, end: 20030801
  5. MEDROXYPROGESTERONE ACETATE [Suspect]
     Dosage: ORAL
     Route: 048
     Dates: start: 19861001, end: 20030801

REACTIONS (1)
  - BREAST CANCER FEMALE [None]
